FAERS Safety Report 6440934-X (Version None)
Quarter: 2009Q4

REPORT INFORMATION
  Report Type: 
  Country: None (occurrence: None)
  Receive Date: 20091116
  Receipt Date: 20091102
  Transmission Date: 20100525
  Serious: Yes (Other)
  Sender: FDA-Public Use
  Company Number: PHHY2009DE19905

PATIENT
  Age: 68 Year
  Sex: Female
  Weight: 78 kg

DRUGS (8)
  1. PROVAS [Suspect]
     Dosage: 1 DF (160MG), QD
     Dates: start: 20090403, end: 20090518
  2. PROVAS [Suspect]
     Dosage: 1 DF (320MG), QD
     Dates: start: 20090519
  3. METOPROLOL TARTRATE AND HYDROCHLOROTHIAZIDE [Suspect]
     Dosage: 1 DF, QD
  4. HYDROCHLOROTHIAZIDE [Suspect]
     Dosage: 12.5 MG, UNK
     Dates: start: 20090302
  5. BETA BLOCKING AGENTS [Concomitant]
  6. AGGRENOX [Concomitant]
     Indication: POST PROCEDURAL STROKE
     Dosage: 2 DF, QD
  7. L-THYROXIN [Concomitant]
     Indication: GOITRE
     Dosage: 1 DF, QD
  8. L-THYROXIN [Concomitant]

REACTIONS (2)
  - BLOOD PRESSURE INADEQUATELY CONTROLLED [None]
  - EPISTAXIS [None]
